FAERS Safety Report 14596936 (Version 2)
Quarter: 2018Q2

REPORT INFORMATION
  Report Type: Spontaneous
  Country: IT (occurrence: IT)
  Receive Date: 20180305
  Receipt Date: 20180528
  Transmission Date: 20180711
  Serious: Yes (Hospitalization, Other)
  Sender: FDA-Public Use
  Company Number: IT-AXELLIA-001300

PATIENT
  Age: 59 Year
  Sex: Female

DRUGS (10)
  1. PEGASPARGASE [Suspect]
     Active Substance: PEGASPARGASE
     Indication: ACUTE LYMPHOCYTIC LEUKAEMIA
     Dosage: INDUCTION CHEMOTHERAPY
     Dates: start: 20161106
  2. POSACONAZOLE [Concomitant]
     Active Substance: POSACONAZOLE
     Indication: ANTIFUNGAL PROPHYLAXIS
     Dosage: 24 HOURS AFTER EACH VINCRISTINE COURSE
  3. CYTOSINE ARABINOSIDE [Suspect]
     Active Substance: CYTARABINE
     Indication: ACUTE LYMPHOCYTIC LEUKAEMIA
     Route: 037
     Dates: start: 20161102
  4. IDARUBICIN [Suspect]
     Active Substance: IDARUBICIN
     Indication: ACUTE LYMPHOCYTIC LEUKAEMIA
     Dates: start: 20161029
  5. DEXAMETHASONE. [Suspect]
     Active Substance: DEXAMETHASONE
     Indication: ACUTE LYMPHOCYTIC LEUKAEMIA
     Route: 037
     Dates: start: 20161102
  6. VORICONAZOLE. [Suspect]
     Active Substance: VORICONAZOLE
     Indication: FUSARIUM INFECTION
     Dosage: 4 MG/KG, BID, 6 MG/KG, BID
     Route: 042
  7. AMPHOTERICIN B/AMPHOTERICIN B/LIPOSOME [Suspect]
     Active Substance: AMPHOTERICIN B
     Indication: FUSARIUM INFECTION
     Dosage: 5 MG/KG, QD
  8. CYCLOPHOSPHAMIDE/CYCLOPHOSPHAMIDE MONOHYDRATE [Suspect]
     Active Substance: CYCLOPHOSPHAMIDE
     Indication: ACUTE LYMPHOCYTIC LEUKAEMIA
     Dates: start: 20161025
  9. VINCRISTINE [Suspect]
     Active Substance: VINCRISTINE
     Indication: ACUTE LYMPHOCYTIC LEUKAEMIA
     Dates: start: 20161029
  10. METHOTREXATE. [Suspect]
     Active Substance: METHOTREXATE
     Indication: ACUTE LYMPHOCYTIC LEUKAEMIA
     Route: 037
     Dates: start: 20161102

REACTIONS (25)
  - Endophthalmitis [Recovered/Resolved]
  - Eye abscess [Recovering/Resolving]
  - Vitritis [Recovered/Resolved]
  - Septic shock [Recovered/Resolved]
  - Oral disorder [Unknown]
  - Hypotension [Recovered/Resolved]
  - Enterococcal bacteraemia [Recovered/Resolved]
  - Cholecystitis acute [Recovered/Resolved]
  - Chorioretinal disorder [Recovered/Resolved]
  - Vitreous floaters [Recovered/Resolved]
  - Pyrexia [Recovered/Resolved]
  - Febrile neutropenia [Recovered/Resolved]
  - Visual acuity reduced [Recovered/Resolved]
  - Iridocyclitis [Recovered/Resolved]
  - C-reactive protein increased [Recovered/Resolved]
  - Conjunctival oedema [Recovered/Resolved]
  - Herpes simplex [Recovered/Resolved]
  - Skin necrosis [Recovered/Resolved]
  - Skin lesion [Recovered/Resolved]
  - Eye pain [Recovered/Resolved]
  - Eyelid oedema [Recovered/Resolved]
  - Iris adhesions [Recovered/Resolved]
  - Fusarium infection [Recovered/Resolved]
  - Hyperaemia [Recovered/Resolved]
  - Cranial nerve infection [Recovering/Resolving]

NARRATIVE: CASE EVENT DATE: 2016
